FAERS Safety Report 6261368-7 (Version None)
Quarter: 2009Q3

REPORT INFORMATION
  Report Type: 
  Country: None (occurrence: None)
  Receive Date: 20090709
  Receipt Date: 20090626
  Transmission Date: 20100115
  Serious: Yes (Hospitalization)
  Sender: FDA-Public Use
  Company Number: JP-PFIZER INC-2009234764

PATIENT
  Age: 83 Year

DRUGS (5)
  1. PREGABALIN [Suspect]
     Indication: DIABETIC NEUROPATHY
     Dosage: 75 MG, 2X/DAY
     Route: 048
     Dates: start: 20090409, end: 20090513
  2. PREGABALIN [Suspect]
     Dosage: 75 MG, 2X/DAY
     Route: 048
     Dates: start: 20081119, end: 20081125
  3. PREGABALIN [Suspect]
     Dosage: 150 MG, 2X/DAY
     Route: 048
     Dates: start: 20081126, end: 20081202
  4. PREGABALIN [Suspect]
     Dosage: 225 MG, 2X/DAY
     Route: 048
     Dates: start: 20081230, end: 20090217
  5. PREGABALIN [Suspect]
     Dosage: 150 MG, 2X/DAY
     Route: 048
     Dates: start: 20090218, end: 20090408

REACTIONS (1)
  - ARTERIAL STENOSIS [None]
